FAERS Safety Report 26168514 (Version 2)
Quarter: 2025Q4

REPORT INFORMATION
  Report Type: Spontaneous
  Country: GB (occurrence: GB)
  Receive Date: 20251217
  Receipt Date: 20251230
  Transmission Date: 20260118
  Serious: Yes (Hospitalization, Other)
  Sender: SAMSUNG BIOEPIS
  Company Number: GB-SAMSUNG BIOEPIS-SB-2025-41416

PATIENT
  Age: 56 Year
  Sex: Male

DRUGS (3)
  1. IMRALDI [Suspect]
     Active Substance: ADALIMUMAB
     Indication: Psoriatic arthropathy
     Route: 058
     Dates: start: 201912, end: 202212
  2. IMRALDI [Suspect]
     Active Substance: ADALIMUMAB
     Indication: Spondylitis
  3. ACITRETIN [Concomitant]
     Active Substance: ACITRETIN
     Indication: Psoriasis

REACTIONS (3)
  - Cutaneous tuberculosis [Recovered/Resolved]
  - Psoriatic arthropathy [Recovering/Resolving]
  - Paradoxical drug reaction [Recovering/Resolving]

NARRATIVE: CASE EVENT DATE: 20220601
